FAERS Safety Report 14543744 (Version 8)
Quarter: 2018Q4

REPORT INFORMATION
  Report Type: Report from Study
  Country: JP (occurrence: JP)
  Receive Date: 20180216
  Receipt Date: 20181227
  Transmission Date: 20190204
  Serious: Yes (Death, Life-Threatening, Other)
  Sender: FDA-Public Use
  Company Number: JP-BEH-2018088022

PATIENT
  Age: 69 Year
  Sex: Female
  Weight: 60 kg

DRUGS (34)
  1. HEPARIN [Concomitant]
     Active Substance: HEPARIN SODIUM
     Dosage: 5000 IU, QD
     Route: 042
     Dates: start: 20180208, end: 20180208
  2. MECOBALAMIN [Concomitant]
     Active Substance: METHYLCOBALAMIN
     Indication: PERIPHERAL VASCULAR DISORDER
     Dosage: UNK
     Route: 048
     Dates: end: 20180212
  3. NEXIUM [Concomitant]
     Active Substance: ESOMEPRAZOLE MAGNESIUM
     Indication: GASTROOESOPHAGEAL REFLUX DISEASE
     Dosage: UNK
     Route: 048
     Dates: start: 20180210, end: 20180212
  4. BERIPLEX P/N [Suspect]
     Active Substance: COAGULATION FACTOR IX HUMAN\COAGULATION FACTOR VII HUMAN\COAGULATION FACTOR X HUMAN\PROTEIN C\PROTEIN S HUMAN\PROTHROMBIN
     Dosage: [500IU]
     Route: 042
  5. ASVERIN (TIPEPIDINE HIBENZATE) [Concomitant]
     Active Substance: TIPEPIDINE HIBENZATE
     Route: 065
  6. SELBEX [Concomitant]
     Active Substance: TEPRENONE
     Route: 065
  7. FRESH FROZEN PLASMA [Concomitant]
     Active Substance: HUMAN PLASMA
     Dosage: 720 ML, UNK
     Route: 065
  8. LIMAPROST [Concomitant]
     Active Substance: LIMAPROST
     Indication: OSTEOPOROSIS
     Dosage: UNK
     Route: 048
     Dates: end: 20180212
  9. AMBROXOL [Concomitant]
     Active Substance: AMBROXOL
     Indication: ASTHMA
     Dosage: UNK
     Route: 048
     Dates: end: 20180212
  10. OPALMON [Concomitant]
     Active Substance: LIMAPROST
     Indication: PERIPHERAL VASCULAR DISORDER
     Dosage: UNK
     Route: 048
     Dates: start: 20180210, end: 20180212
  11. PREDONINE [Concomitant]
     Active Substance: PREDNISOLONE
     Route: 065
  12. NORADRENALINE                      /00127501/ [Concomitant]
     Active Substance: NOREPINEPHRINE
     Dosage: 1 MG, QD
     Route: 042
     Dates: start: 20180208, end: 20180208
  13. WARFARIN [Concomitant]
     Active Substance: WARFARIN
     Indication: ATRIAL FIBRILLATION
     Dosage: 1 MG, UNK
     Route: 065
  14. MECOBALAMIN [Concomitant]
     Active Substance: METHYLCOBALAMIN
     Indication: NEUROPATHY PERIPHERAL
     Dosage: UNK
     Route: 048
     Dates: start: 20180210, end: 20180212
  15. CARBOCISTEINE [Concomitant]
     Active Substance: CARBOCYSTEINE
     Indication: ASTHMA
     Dosage: UNK
     Route: 048
     Dates: end: 20180212
  16. MEPTIN AIR [Concomitant]
     Active Substance: PROCATEROL HYDROCHLORIDE
     Indication: ASTHMA
     Dosage: UNK
     Route: 065
     Dates: end: 20180212
  17. THEOPHYLLINE [Concomitant]
     Active Substance: THEOPHYLLINE ANHYDROUS
     Indication: ASTHMA
     Dosage: UNK
     Route: 048
     Dates: end: 20180212
  18. BERIPLEX P/N [Suspect]
     Active Substance: COAGULATION FACTOR IX HUMAN\COAGULATION FACTOR VII HUMAN\COAGULATION FACTOR X HUMAN\PROTEIN C\PROTEIN S HUMAN\PROTHROMBIN
     Indication: HAEMORRHAGE
     Dosage: 1500 IU, UNK
     Route: 042
     Dates: start: 20180208, end: 20180208
  19. AZILVA [Concomitant]
     Active Substance: AZILSARTAN KAMEDOXOMIL
     Indication: HYPERTENSION
     Dosage: UNK
     Route: 048
     Dates: start: 20180210, end: 20180212
  20. BICARBON [Concomitant]
     Active Substance: SODIUM BICARBONATE
     Dosage: 1000 ML, QD
     Route: 042
     Dates: start: 20180208, end: 20180208
  21. WARFARIN [Concomitant]
     Active Substance: WARFARIN
     Dosage: 2 MG, QD
     Route: 065
     Dates: start: 20150427, end: 20180209
  22. STOMIN A [Concomitant]
     Active Substance: NIACINAMIDE\PAPAVERINE HYDROCHLORIDE
     Indication: PERIPHERAL VASCULAR DISORDER
     Dosage: UNK
     Route: 048
     Dates: end: 20180212
  23. PATANOL [Concomitant]
     Active Substance: OLOPATADINE HYDROCHLORIDE
     Indication: CONJUNCTIVITIS ALLERGIC
     Dosage: UNK
     Route: 065
     Dates: end: 20180212
  24. BERIPLEX P/N [Suspect]
     Active Substance: COAGULATION FACTOR IX HUMAN\COAGULATION FACTOR VII HUMAN\COAGULATION FACTOR X HUMAN\PROTEIN C\PROTEIN S HUMAN\PROTHROMBIN
     Indication: SURGERY
     Dosage: [1000IU]
     Route: 042
  25. ONOACT [Concomitant]
     Active Substance: LANDIOLOL HYDROCHLORIDE
     Dosage: 150 MG, UNK
     Route: 042
     Dates: start: 20180208, end: 20180212
  26. KAYTWO [Concomitant]
     Active Substance: MENATETRENONE
     Indication: PROCOAGULANT THERAPY
     Dosage: 10 MG, QD
     Route: 042
     Dates: start: 20180208, end: 20180208
  27. LORCAM [Concomitant]
     Active Substance: LORNOXICAM
     Indication: BACK PAIN
     Dosage: UNK
     Route: 048
     Dates: end: 20180212
  28. VASOLAN                            /00014302/ [Concomitant]
     Active Substance: VERAPAMIL HYDROCHLORIDE
     Indication: ATRIAL FIBRILLATION
     Dosage: UNK
     Route: 065
     Dates: start: 20180209
  29. BAKTAR [Concomitant]
     Active Substance: SULFAMETHOXAZOLE\TRIMETHOPRIM
     Route: 065
  30. NEOSYNESIN                         /00116302/ [Concomitant]
     Dosage: 3 MG, OD
     Route: 042
     Dates: start: 20180208, end: 20180208
  31. BICARBON [Concomitant]
     Active Substance: SODIUM BICARBONATE
     Dosage: 500 ML, QD
     Route: 042
     Dates: start: 20180208, end: 20180208
  32. ASVERIN (TIPEPIDINE HIBENZATE) [Concomitant]
     Active Substance: TIPEPIDINE HIBENZATE
     Indication: ASTHMA
     Dosage: UNK
     Route: 048
     Dates: end: 20180212
  33. PREDNISOLONE. [Concomitant]
     Active Substance: PREDNISOLONE
     Route: 065
  34. VILANTEROL [Concomitant]
     Active Substance: VILANTEROL TRIFENATATE
     Indication: ASTHMA
     Dosage: UNK
     Route: 065
     Dates: end: 20180212

REACTIONS (7)
  - Pyrexia [Fatal]
  - Tachycardia [Unknown]
  - Cardiac failure [Fatal]
  - Cardiac arrest [Fatal]
  - Bradycardia [Recovered/Resolved]
  - Bradycardia [Unknown]
  - Pneumonia aspiration [Fatal]

NARRATIVE: CASE EVENT DATE: 20180208
